FAERS Safety Report 13644355 (Version 1)
Quarter: 2017Q2

REPORT INFORMATION
  Report Type: Spontaneous
  Country: US (occurrence: US)
  Receive Date: 20170612
  Receipt Date: 20170612
  Transmission Date: 20170830
  Serious: Yes (Other)
  Sender: FDA-Public Use
  Company Number: US-ROCHE-1306787

PATIENT
  Sex: Male

DRUGS (8)
  1. OMEPRAZOLE. [Concomitant]
     Active Substance: OMEPRAZOLE
  2. XELODA [Suspect]
     Active Substance: CAPECITABINE
     Indication: BENIGN NEOPLASM OF THYMUS
     Dosage: DAYS 1-14
     Route: 048
     Dates: start: 20130412
  3. SIMVASTATIN. [Concomitant]
     Active Substance: SIMVASTATIN
  4. BIOTIN [Concomitant]
     Active Substance: BIOTIN
  5. TRICOR [Concomitant]
     Active Substance: FENOFIBRATE
  6. CELEBREX [Concomitant]
     Active Substance: CELECOXIB
  7. FISH OIL [Concomitant]
     Active Substance: FISH OIL
  8. XELODA [Suspect]
     Active Substance: CAPECITABINE
     Indication: METASTASES TO LUNG
     Dosage: FOR 14 DAYS
     Route: 048
     Dates: start: 20121120

REACTIONS (1)
  - Palmar-plantar erythrodysaesthesia syndrome [Not Recovered/Not Resolved]
